FAERS Safety Report 14749617 (Version 2)
Quarter: 2018Q2

REPORT INFORMATION
  Report Type: Spontaneous
  Country: US (occurrence: US)
  Receive Date: 20180411
  Receipt Date: 20180425
  Transmission Date: 20180711
  Serious: No
  Sender: FDA-Public Use
  Company Number: US-BIOGEN-2018BI00552049

PATIENT
  Sex: Female

DRUGS (1)
  1. AVONEX [Suspect]
     Active Substance: INTERFERON BETA-1A
     Indication: MULTIPLE SCLEROSIS
     Route: 030

REACTIONS (8)
  - Hepatic enzyme increased [Recovered/Resolved]
  - Dyspepsia [Not Recovered/Not Resolved]
  - Carpal tunnel syndrome [Not Recovered/Not Resolved]
  - Stress [Unknown]
  - Hypertonic bladder [Not Recovered/Not Resolved]
  - Treatment failure [Unknown]
  - Irritable bowel syndrome [Not Recovered/Not Resolved]
  - Multiple sclerosis relapse [Unknown]
